FAERS Safety Report 9850359 (Version 1)
Quarter: 2013Q4

REPORT INFORMATION
  Report Type: Spontaneous
  Country: US (occurrence: None)
  Receive Date: 20131226
  Receipt Date: 20131226
  Transmission Date: 20140711
  Serious: Yes (Hospitalization)
  Sender: FDA-Public Use
  Company Number: PHEH2012US017250

PATIENT
  Age: 80 Year
  Sex: Female

DRUGS (6)
  1. DIOVAN [Suspect]
     Indication: BLOOD PRESSURE
     Route: 048
     Dates: end: 201011
  2. POTASSIUM (POTASSIUM) [Concomitant]
  3. MULTAQ (DRONEDARONE HYDROCHLORIDE) [Concomitant]
  4. HYDRALAZINE (HYDRALAZINE) [Concomitant]
  5. SPIRONOLACTONE (SPIRONOLACTONE) [Concomitant]
  6. FISH OIL (FISH OIL) [Concomitant]

REACTIONS (1)
  - Blood pressure increased [None]
